FAERS Safety Report 21465930 (Version 1)
Quarter: 2022Q4

REPORT INFORMATION
  Report Type: Spontaneous
  Country: US (occurrence: None)
  Receive Date: 20221016
  Receipt Date: 20221016
  Transmission Date: 20230113
  Serious: No
  Sender: FDA-Public Use
  Company Number: None

PATIENT
  Age: 18 Year
  Sex: Female
  Weight: 45 kg

DRUGS (2)
  1. ADAPALENE [Suspect]
     Active Substance: ADAPALENE
     Indication: Acne
     Dosage: FREQUENCY : DAILY;?
     Route: 061
  2. MELATONIN [Concomitant]
     Active Substance: MELATONIN

REACTIONS (7)
  - Application site irritation [None]
  - Dry skin [None]
  - Skin exfoliation [None]
  - Application site pain [None]
  - Application site pruritus [None]
  - Skin discomfort [None]
  - Application site pain [None]

NARRATIVE: CASE EVENT DATE: 20221016
